FAERS Safety Report 22089534 (Version 1)
Quarter: 2023Q1

REPORT INFORMATION
  Report Type: Spontaneous
  Country: US (occurrence: None)
  Receive Date: 20230312
  Receipt Date: 20230312
  Transmission Date: 20230418
  Serious: Yes (Other)
  Sender: FDA-Public Use
  Company Number: None

PATIENT
  Age: 45 Year
  Sex: Female
  Weight: 68.4 kg

DRUGS (1)
  1. PURELL ADVANCED HAND SANITIZER ENERGIZING MINT [Suspect]
     Active Substance: ALCOHOL
     Indication: Infection prophylaxis
     Dosage: FREQUENCY : AS NEEDED;?
     Route: 003
     Dates: start: 20221201

REACTIONS (2)
  - Skin exfoliation [None]
  - Skin exfoliation [None]

NARRATIVE: CASE EVENT DATE: 20230225
